FAERS Safety Report 10512701 (Version 1)
Quarter: 2014Q4

REPORT INFORMATION
  Report Type: Spontaneous
  Country: US (occurrence: US)
  Receive Date: 20141012
  Receipt Date: 20141012
  Transmission Date: 20150528
  Serious: Yes (Other)
  Sender: FDA-Public Use
  Company Number: US-MYLANLABS-2014M1006870

PATIENT

DRUGS (3)
  1. AMIODARONE [Suspect]
     Active Substance: AMIODARONE
     Indication: ARRHYTHMOGENIC RIGHT VENTRICULAR DYSPLASIA
     Dosage: 100 MG, BID
     Route: 065
  2. SOTALOL. [Concomitant]
     Active Substance: SOTALOL
     Indication: ARRHYTHMOGENIC RIGHT VENTRICULAR DYSPLASIA
     Dosage: 220 MG, BID
     Route: 065
  3. AMIODARONE [Suspect]
     Active Substance: AMIODARONE
     Dosage: 200 MG, BID
     Route: 065

REACTIONS (3)
  - Dyspnoea [Unknown]
  - Toxicity to various agents [Unknown]
  - Dermatitis [Unknown]
